FAERS Safety Report 11258464 (Version 2)
Quarter: 2015Q3

REPORT INFORMATION
  Report Type: Report from Study
  Country: GB (occurrence: GB)
  Receive Date: 20150710
  Receipt Date: 20150712
  Transmission Date: 20151125
  Serious: Yes (Other)
  Sender: FDA-Public Use
  Company Number: GB-EMD SERONO-8032649

PATIENT
  Sex: Male

DRUGS (1)
  1. SAIZEN [Suspect]
     Active Substance: SOMATROPIN
     Indication: MEDULLOBLASTOMA
     Dates: start: 20130816, end: 2015

REACTIONS (2)
  - Off label use [Recovered/Resolved]
  - Medulloblastoma recurrent [Unknown]
